FAERS Safety Report 4844842-7 (Version None)
Quarter: 2005Q4

REPORT INFORMATION
  Report Type: 
  Country: None (occurrence: None)
  Receive Date: 20051205
  Receipt Date: 20051122
  Transmission Date: 20060501
  Serious: Yes (Hospitalization)
  Sender: FDA-Public Use
  Company Number: FR-JNJFOC-20051200369

PATIENT
  Age: 87 Year
  Sex: Female

DRUGS (3)
  1. CONTRAMAL [Suspect]
     Indication: DRUG USE FOR UNKNOWN INDICATION
     Route: 065
  2. PARAPSYLLIUM [Suspect]
     Route: 065
  3. PARAPSYLLIUM [Suspect]
     Indication: DRUG USE FOR UNKNOWN INDICATION
     Route: 065

REACTIONS (4)
  - CONFUSIONAL STATE [None]
  - ERYTHEMA [None]
  - FACE OEDEMA [None]
  - OCULAR HYPERAEMIA [None]
